FAERS Safety Report 6024674-7 (Version None)
Quarter: 2008Q4

REPORT INFORMATION
  Report Type: 
  Country: None (occurrence: None)
  Receive Date: 20081230
  Receipt Date: 20081230
  Transmission Date: 20090506
  Serious: Yes (Other)
  Sender: FDA-Public Use
  Company Number: None

PATIENT
  Age: 16 Year
  Sex: Male
  Weight: 48.5 kg

DRUGS (5)
  1. CETIRIZINE [Suspect]
     Indication: OCULOAURICULOVERTEBRAL DYSPLASIA
     Dosage: 10 MG PO DAILY
     Route: 048
     Dates: start: 20070101, end: 20080101
  2. CETIRIZINE [Suspect]
     Indication: RHINITIS ALLERGIC
     Dosage: 10 MG PO DAILY
     Route: 048
     Dates: start: 20070101, end: 20080101
  3. ALBUTEROL [Concomitant]
  4. FLONASE [Concomitant]
  5. ADVAIR DISKUS 250/50 [Concomitant]

REACTIONS (5)
  - EYE PRURITUS [None]
  - NASAL CONGESTION [None]
  - SNEEZING [None]
  - TREATMENT FAILURE [None]
  - UPPER RESPIRATORY TRACT INFECTION [None]
